FAERS Safety Report 15747096 (Version 2)
Quarter: 2018Q4

REPORT INFORMATION
  Report Type: Report from Study
  Country: None (occurrence: CZ)
  Receive Date: 20181220
  Receipt Date: 20181228
  Transmission Date: 20190205
  Serious: Yes (Hospitalization)
  Sender: FDA-Public Use
  Company Number: CZ-ABBVIE-18P-217-2596255-00

PATIENT
  Age: 57 Year
  Sex: Female

DRUGS (30)
  1. VENETOCLAX. [Suspect]
     Active Substance: VENETOCLAX
     Indication: CHRONIC LYMPHOCYTIC LEUKAEMIA
     Route: 048
     Dates: start: 20150917, end: 20150923
  2. LEVOTHYROXINUM NATRICUM [Concomitant]
     Indication: HYPOTHYROIDISM
     Route: 065
     Dates: start: 201011
  3. HYDROCORTISONE. [Concomitant]
     Active Substance: HYDROCORTISONE
     Route: 065
     Dates: start: 20160218, end: 20160218
  4. FILGRASTIMUM [Concomitant]
     Indication: NEUTROPENIA
     Route: 065
     Dates: start: 20150924, end: 20150926
  5. FILGRASTIMUM [Concomitant]
     Route: 065
     Dates: start: 20151103, end: 20151103
  6. FILGRASTIMUM [Concomitant]
     Route: 065
     Dates: start: 20151221, end: 20151221
  7. PARACETAMOLUM [Concomitant]
     Active Substance: ACETAMINOPHEN
     Route: 065
     Dates: start: 20160218, end: 20160218
  8. HYDROCORTISON [Concomitant]
     Active Substance: HYDROCORTISONE
     Indication: PREMEDICATION
     Route: 065
     Dates: start: 20151029, end: 20151029
  9. VENETOCLAX. [Suspect]
     Active Substance: VENETOCLAX
     Route: 048
     Dates: start: 20151008, end: 20151014
  10. PARACETAMOLUM [Concomitant]
     Active Substance: ACETAMINOPHEN
     Route: 065
     Dates: start: 20160317, end: 20160317
  11. HYDROCORTISON [Concomitant]
     Active Substance: HYDROCORTISONE
     Route: 065
     Dates: start: 20160317, end: 20160317
  12. FILGRASTIMUM [Concomitant]
     Indication: PROPHYLAXIS
     Route: 065
     Dates: start: 20151005, end: 20151006
  13. FILGRASTIMUM [Concomitant]
     Route: 065
     Dates: start: 20151019, end: 20151020
  14. FILGRASTIMUM [Concomitant]
     Route: 065
     Dates: start: 20160215, end: 20160215
  15. PARACETAMOLUM [Concomitant]
     Active Substance: ACETAMINOPHEN
     Indication: PREMEDICATION
     Route: 065
     Dates: start: 20151029, end: 20151029
  16. HYDROCORTISONE. [Concomitant]
     Active Substance: HYDROCORTISONE
     Route: 065
     Dates: start: 20160121, end: 20160121
  17. FILGRASTIMUM [Concomitant]
     Route: 065
     Dates: start: 20151012, end: 20151013
  18. PARACETAMOLUM [Concomitant]
     Active Substance: ACETAMINOPHEN
     Route: 065
     Dates: start: 20151223, end: 20151223
  19. HYDROCORTISON [Concomitant]
     Active Substance: HYDROCORTISONE
     Route: 065
     Dates: start: 20151126, end: 20151126
  20. VENETOCLAX. [Suspect]
     Active Substance: VENETOCLAX
     Route: 048
     Dates: start: 20151015, end: 20151021
  21. RITUXIMAB. [Suspect]
     Active Substance: RITUXIMAB
     Route: 042
     Dates: start: 20151126, end: 20160317
  22. VENETOCLAX. [Suspect]
     Active Substance: VENETOCLAX
     Route: 048
     Dates: start: 20151001, end: 20151007
  23. FILGRASTIMUM [Concomitant]
     Route: 065
     Dates: start: 20151027, end: 20151027
  24. FILGRASTIMUM [Concomitant]
     Route: 065
     Dates: start: 20160118, end: 20160118
  25. OVOSAN - EGG PHOSPHOLIPIDS AND SUNFLOWER EDIBLE OIL [Concomitant]
     Indication: PROPHYLAXIS
     Route: 065
     Dates: start: 2010
  26. VENETOCLAX. [Suspect]
     Active Substance: VENETOCLAX
     Dosage: MOST RECENT DOSE PRIOR TO AE ONSET 14 DEC 2018
     Route: 048
     Dates: start: 20151022
  27. RITUXIMAB. [Suspect]
     Active Substance: RITUXIMAB
     Indication: CHRONIC LYMPHOCYTIC LEUKAEMIA
     Route: 042
     Dates: start: 20151029, end: 20151029
  28. PARACETAMOLUM [Concomitant]
     Active Substance: ACETAMINOPHEN
     Route: 065
     Dates: start: 20151126, end: 20151126
  29. PARACETAMOLUM [Concomitant]
     Active Substance: ACETAMINOPHEN
     Route: 065
     Dates: start: 20160121, end: 20160121
  30. HYDROCORTISONE. [Concomitant]
     Active Substance: HYDROCORTISONE
     Indication: PREMEDICATION
     Route: 065
     Dates: start: 20151223, end: 20151223

REACTIONS (1)
  - Anaemia [Recovered/Resolved]

NARRATIVE: CASE EVENT DATE: 20181213
